FAERS Safety Report 5304946-1 (Version None)
Quarter: 2007Q2

REPORT INFORMATION
  Report Type: 
  Country: None (occurrence: None)
  Receive Date: 20070423
  Receipt Date: 20070411
  Transmission Date: 20071010
  Serious: Yes (Other)
  Sender: FDA-Public Use
  Company Number: US-SHR-US-2007-013212

PATIENT
  Age: 46 Year
  Sex: Female
  Weight: 75.2 kg

DRUGS (3)
  1. LEUKINE [Suspect]
     Dosage: 500 A?G, UNK
     Route: 058
     Dates: start: 20050829
  2. PROCRIT [Concomitant]
     Dosage: UNK, UNK
     Route: 058
  3. TOPOTECAN [Concomitant]
     Dosage: 2.75 MG, Q3 WEEKS
     Route: 042
     Dates: start: 20061009, end: 20070308

REACTIONS (3)
  - HAEMATOCRIT DECREASED [None]
  - HAEMOGLOBIN DECREASED [None]
  - TRANSFUSION REACTION [None]
